FAERS Safety Report 20562688 (Version 1)
Quarter: 2022Q1

REPORT INFORMATION
  Report Type: Spontaneous
  Country: US (occurrence: None)
  Receive Date: 20220307
  Receipt Date: 20220307
  Transmission Date: 20220424
  Serious: Yes (Hospitalization)
  Sender: FDA-Public Use
  Company Number: US-FARMAPROD-202202-0261

PATIENT
  Sex: Male

DRUGS (28)
  1. OXERVATE [Suspect]
     Active Substance: CENEGERMIN-BKBJ
     Indication: Neurotrophic keratopathy
     Route: 047
     Dates: start: 20220120
  2. CODEINE PHOSPHATE [Concomitant]
     Active Substance: CODEINE PHOSPHATE
  3. LIDOCAINE [Concomitant]
     Active Substance: LIDOCAINE
  4. ASPERCREME LIDOCAINE [Concomitant]
  5. THERATEARS [Concomitant]
     Active Substance: CARBOXYMETHYLCELLULOSE SODIUM
  6. COMPAZINE [Concomitant]
     Active Substance: PROCHLORPERAZINE MALEATE
  7. XIFAXAN [Concomitant]
     Active Substance: RIFAXIMIN
  8. PRAVASTATIN SODIUM [Concomitant]
     Active Substance: PRAVASTATIN SODIUM
  9. ZYRTEC [Concomitant]
     Active Substance: CETIRIZINE HYDROCHLORIDE
  10. CARAFATE [Concomitant]
     Active Substance: SUCRALFATE
  11. CYCLOSPORINE IN KLARITY [Concomitant]
  12. ERYTHROMYCIN [Concomitant]
     Active Substance: ERYTHROMYCIN
  13. VOLTAREN ARTHRITIS PAIN [Concomitant]
     Active Substance: DICLOFENAC SODIUM
  14. ATIVAN [Concomitant]
     Active Substance: LORAZEPAM
  15. METOPROLOL SUCCINATE [Concomitant]
     Active Substance: METOPROLOL SUCCINATE
  16. PROTONIX [Concomitant]
     Active Substance: PANTOPRAZOLE SODIUM
     Dosage: DELAYED RELEASE
  17. VITAMINS [Concomitant]
     Active Substance: VITAMINS
  18. GINGER [Concomitant]
     Active Substance: GINGER
  19. GABAPENTIN [Concomitant]
     Active Substance: GABAPENTIN
  20. PLAVIX [Concomitant]
     Active Substance: CLOPIDOGREL BISULFATE
  21. VITAMIN D3 [Concomitant]
     Active Substance: CHOLECALCIFEROL
     Dosage: 10(400)/ML
  22. CIPROFLOXACIN [Concomitant]
     Active Substance: CIPROFLOXACIN
  23. LASIX [Concomitant]
     Active Substance: FUROSEMIDE
  24. FLAXSEED [Concomitant]
     Active Substance: FLAX SEED
  25. LEXAPRO [Concomitant]
     Active Substance: ESCITALOPRAM OXALATE
  26. AMOXICILLIN [Concomitant]
     Active Substance: AMOXICILLIN
  27. AMLODIPINE BESYLATE [Concomitant]
     Active Substance: AMLODIPINE BESYLATE
  28. TYLENOL [Concomitant]
     Active Substance: ACETAMINOPHEN
     Dosage: SUSTAINED ACTION 8 HOUR

REACTIONS (2)
  - Hospitalisation [Unknown]
  - Eye irritation [Not Recovered/Not Resolved]
